FAERS Safety Report 5222892-9 (Version None)
Quarter: 2007Q1

REPORT INFORMATION
  Report Type: 
  Country: None (occurrence: None)
  Receive Date: 20061208
  Receipt Date: 20060228
  Transmission Date: 20070707
  Serious: Yes (Hospitalization, Other)
  Sender: FDA-Public Use
  Company Number: 2006031094

PATIENT
  Age: 42 Year
  Sex: Male

DRUGS (1)
  1. VIAGRA [Suspect]
     Indication: ILL-DEFINED DISORDER
     Dosage: ORAL
     Route: 048

REACTIONS (4)
  - DYSURIA [None]
  - ERECTION INCREASED [None]
  - GAIT DISTURBANCE [None]
  - PAINFUL ERECTION [None]
